FAERS Safety Report 8442395-8 (Version None)
Quarter: 2012Q2

REPORT INFORMATION
  Report Type: 
  Country: None (occurrence: None)
  Receive Date: 20120615
  Receipt Date: 20120110
  Transmission Date: 20120825
  Serious: No
  Sender: FDA-Public Use
  Company Number: US-NOVEN-12US003914

PATIENT
  Sex: Female
  Weight: 45.351 kg

DRUGS (2)
  1. DAYTRANA [Suspect]
     Indication: ATTENTION DEFICIT/HYPERACTIVITY DISORDER
     Dosage: 1/2 20 MG
     Route: 062
     Dates: start: 20110901
  2. DAYTRANA [Suspect]
     Dosage: 20 MG, UNK
     Route: 062
     Dates: start: 20110901

REACTIONS (3)
  - WRONG TECHNIQUE IN DRUG USAGE PROCESS [None]
  - INCORRECT STORAGE OF DRUG [None]
  - DRUG PRESCRIBING ERROR [None]
